FAERS Safety Report 8118790-3 (Version None)
Quarter: 2012Q1

REPORT INFORMATION
  Report Type: 
  Country: None (occurrence: None)
  Receive Date: 20120202
  Receipt Date: 20120119
  Transmission Date: 20120608
  Serious: Yes (Hospitalization)
  Sender: FDA-Public Use
  Company Number: 2012AP000178

PATIENT
  Age: 88 Year
  Sex: Female

DRUGS (3)
  1. VERAPAMIL [Suspect]
     Indication: ATRIAL FIBRILLATION
  2. AMIODARONE HCL [Suspect]
     Indication: ATRIAL FIBRILLATION
  3. WARFARIN SODIUM [Suspect]
     Indication: ANTICOAGULANT THERAPY

REACTIONS (2)
  - ANXIETY [None]
  - DRUG INTERACTION [None]
